FAERS Safety Report 19356607 (Version 5)
Quarter: 2023Q4

REPORT INFORMATION
  Report Type: Report from Study
  Country: JP (occurrence: JP)
  Receive Date: 20210601
  Receipt Date: 20231003
  Transmission Date: 20240109
  Serious: Yes (Other)
  Sender: FDA-Public Use
  Company Number: JP-CELLTRION INC.-2021JP006919

PATIENT

DRUGS (10)
  1. INFLIXIMAB-DYYB [Suspect]
     Active Substance: INFLIXIMAB-DYYB
     Indication: Colitis ulcerative
     Dosage: 340 MG (WEIGHT: 68 KG)
     Route: 041
     Dates: start: 20181126, end: 20181126
  2. INFLIXIMAB-DYYB [Suspect]
     Active Substance: INFLIXIMAB-DYYB
     Dosage: 345 MG (WEIGHT: 69 KG)
     Route: 041
     Dates: start: 20190120, end: 20190120
  3. INFLIXIMAB-DYYB [Suspect]
     Active Substance: INFLIXIMAB-DYYB
     Dosage: 360 MG (WEIGHT: 72 KG)
     Route: 041
     Dates: start: 20190316, end: 20190316
  4. INFLIXIMAB-DYYB [Suspect]
     Active Substance: INFLIXIMAB-DYYB
     Dosage: 345 MG (WEIGHT: 69 KG)
     Route: 041
     Dates: start: 20190511, end: 20190511
  5. INFLIXIMAB-DYYB [Suspect]
     Active Substance: INFLIXIMAB-DYYB
     Dosage: 345 MG (WEIGHT: 69.3 KG)
     Route: 041
     Dates: start: 20191221, end: 20191221
  6. INFLIXIMAB-DYYB [Suspect]
     Active Substance: INFLIXIMAB-DYYB
     Dosage: 365 MG (WEIGHT: 73.2 KG)
     Route: 041
     Dates: start: 20201129, end: 20201129
  7. INFLIXIMAB-DYYB [Suspect]
     Active Substance: INFLIXIMAB-DYYB
     Dosage: 360 MG (WEIGHT: 71.7 KG)
     Route: 041
     Dates: start: 20211107, end: 20211107
  8. INFLIXIMAB-DYYB [Suspect]
     Active Substance: INFLIXIMAB-DYYB
     Dosage: 390 MG (WEIGHT: 78.3 KG)
     Route: 041
     Dates: start: 20221211, end: 20221211
  9. INFLIXIMAB [Suspect]
     Active Substance: INFLIXIMAB
     Indication: Product used for unknown indication
  10. MESALAMINE [Concomitant]
     Active Substance: MESALAMINE
     Dosage: 4800 MG, QD
     Route: 048
     Dates: start: 20180319

REACTIONS (8)
  - Large intestinal polypectomy [Recovered/Resolved]
  - Rectal polyp [Recovered/Resolved]
  - Large intestine polyp [Recovered/Resolved]
  - Infusion related reaction [Unknown]
  - Rash [Recovered/Resolved]
  - Chest pain [Unknown]
  - Underdose [Unknown]
  - Overdose [Unknown]

NARRATIVE: CASE EVENT DATE: 20200510
